FAERS Safety Report 9707890 (Version 1)
Quarter: 2013Q4

REPORT INFORMATION
  Report Type: Spontaneous
  Country: US (occurrence: None)
  Receive Date: 20131122
  Receipt Date: 20131122
  Transmission Date: 20140711
  Serious: Yes (Hospitalization)
  Sender: FDA-Public Use
  Company Number: None

PATIENT
  Age: 58 Year
  Sex: Male
  Weight: 73 kg

DRUGS (9)
  1. ABRAXANE [Suspect]
  2. FOSAPREPITANT [Concomitant]
  3. HEPARIN [Concomitant]
  4. LORAZEPAM [Concomitant]
  5. ODANSETRON [Concomitant]
  6. PACLITAXEL-PROTEIN BOUND [Concomitant]
  7. PROCHLORPERAZINE [Concomitant]
  8. SODIUM CHLORIDE [Concomitant]
  9. CARBOPLATIN [Concomitant]

REACTIONS (9)
  - Sepsis [None]
  - Pneumonia aspiration [None]
  - Mental status changes [None]
  - Unresponsive to stimuli [None]
  - Vomiting [None]
  - Headache [None]
  - Neck pain [None]
  - Erythema [None]
  - Local swelling [None]
